APPROVED DRUG PRODUCT: LORATADINE
Active Ingredient: LORATADINE
Strength: 1MG/ML
Dosage Form/Route: SYRUP;ORAL
Application: A075505 | Product #001
Applicant: TEVA PHARMACEUTICALS USA INC
Approved: Nov 7, 2003 | RLD: No | RS: No | Type: DISCN